FAERS Safety Report 7679105-8 (Version None)
Quarter: 2011Q3

REPORT INFORMATION
  Report Type: 
  Country: None (occurrence: None)
  Receive Date: 20110812
  Receipt Date: 20110808
  Transmission Date: 20111222
  Serious: Yes (Other)
  Sender: FDA-Public Use
  Company Number: ES-SP-2011-06808

PATIENT
  Sex: Male

DRUGS (1)
  1. TICE BCG [Suspect]
     Indication: BLADDER CANCER
     Dosage: NOT REPORTED
     Route: 065

REACTIONS (3)
  - CYSTITIS [None]
  - MALAISE [None]
  - BLADDER CANCER RECURRENT [None]
